FAERS Safety Report 8418291-9 (Version None)
Quarter: 2012Q2

REPORT INFORMATION
  Report Type: 
  Country: None (occurrence: None)
  Receive Date: 20120607
  Receipt Date: 20120525
  Transmission Date: 20120825
  Serious: Yes (Hospitalization)
  Sender: FDA-Public Use
  Company Number: US-VIROPHARMA INCORPORATED-20120327CINRY2783

PATIENT
  Sex: Female
  Weight: 131.66 kg

DRUGS (2)
  1. CINRYZE [Suspect]
     Dates: start: 20120520
  2. CINRYZE [Suspect]
     Indication: HEREDITARY ANGIOEDEMA
     Dates: start: 20120201, end: 20120520

REACTIONS (6)
  - INFECTED SKIN ULCER [None]
  - THERAPY REGIMEN CHANGED [None]
  - ANGIOEDEMA [None]
  - WHEEZING [None]
  - HEREDITARY ANGIOEDEMA [None]
  - STRESS [None]
